FAERS Safety Report 15307769 (Version 2)
Quarter: 2018Q3

REPORT INFORMATION
  Report Type: Spontaneous
  Country: TH (occurrence: TH)
  Receive Date: 20180822
  Receipt Date: 20180831
  Transmission Date: 20181010
  Serious: Yes (Hospitalization)
  Sender: FDA-Public Use
  Company Number: TH-OTSUKA-2018_028693

PATIENT
  Age: 37 Year
  Weight: 53 kg

DRUGS (1)
  1. BUSULFEX [Suspect]
     Active Substance: BUSULFAN
     Indication: BONE MARROW TRANSPLANT
     Dosage: 42 MG + NSS 70 ML EVERY 6 HOURS FOR 4 DAYS
     Route: 065
     Dates: start: 20160105, end: 20160108

REACTIONS (7)
  - Mucosal inflammation [Unknown]
  - Product use in unapproved indication [Unknown]
  - Venoocclusive liver disease [Unknown]
  - Transaminases increased [Unknown]
  - Escherichia urinary tract infection [Unknown]
  - Febrile neutropenia [Unknown]
  - Thrombocytopenia [Unknown]
